FAERS Safety Report 17044696 (Version 1)
Quarter: 2019Q4

REPORT INFORMATION
  Report Type: Spontaneous
  Country: BR (occurrence: BR)
  Receive Date: 20191118
  Receipt Date: 20191118
  Transmission Date: 20200122
  Serious: Yes (Hospitalization)
  Sender: FDA-Public Use
  Company Number: NVSC2019BR036593

PATIENT
  Age: 56 Year
  Sex: Female

DRUGS (1)
  1. FEMARA [Suspect]
     Active Substance: LETROZOLE
     Indication: PRODUCT USED FOR UNKNOWN INDICATION
     Dosage: UNK
     Route: 065

REACTIONS (3)
  - Finger deformity [Recovered/Resolved with Sequelae]
  - Trigger finger [Recovered/Resolved with Sequelae]
  - Tendonitis [Recovered/Resolved with Sequelae]

NARRATIVE: CASE EVENT DATE: 201712
